FAERS Safety Report 12280714 (Version 1)
Quarter: 2016Q2

REPORT INFORMATION
  Report Type: Spontaneous
  Country: US (occurrence: None)
  Receive Date: 20160418
  Receipt Date: 20160418
  Transmission Date: 20160815
  Serious: Yes (Hospitalization)
  Sender: FDA-Public Use
  Company Number: None

PATIENT
  Age: 32 Year
  Sex: Female
  Weight: 43.55 kg

DRUGS (6)
  1. REGLAN [Suspect]
     Active Substance: METOCLOPRAMIDE HYDROCHLORIDE
     Indication: NAUSEA
     Dosage: INTO A WEIN
     Route: 042
     Dates: start: 20160406, end: 20160407
  2. MAGNESIUM [Concomitant]
     Active Substance: MAGNESIUM
  3. MULTI VITAMIN [Concomitant]
     Active Substance: VITAMINS
  4. VITAMIN E [Concomitant]
     Active Substance: .ALPHA.-TOCOPHEROL
  5. ZANTAC [Concomitant]
     Active Substance: RANITIDINE HYDROCHLORIDE
  6. OMEGAS [Concomitant]

REACTIONS (14)
  - Feeling jittery [None]
  - Muscle spasms [None]
  - Supraventricular tachycardia [None]
  - Nonspecific reaction [None]
  - Anxiety [None]
  - Palpitations [None]
  - Feeling abnormal [None]
  - Paraesthesia [None]
  - Burning sensation [None]
  - Incoherent [None]
  - Tremor [None]
  - Overdose [None]
  - Hallucination [None]
  - Major depression [None]

NARRATIVE: CASE EVENT DATE: 20160407
